FAERS Safety Report 14834749 (Version 2)
Quarter: 2018Q2

REPORT INFORMATION
  Report Type: Report from Study
  Country: US (occurrence: US)
  Receive Date: 20180501
  Receipt Date: 20180605
  Transmission Date: 20180711
  Serious: Yes (Death, Hospitalization)
  Sender: FDA-Public Use
  Company Number: US-ACTELION-A-NJ2018-171250

PATIENT
  Age: 75 Year
  Sex: Female

DRUGS (1)
  1. UPTRAVI [Suspect]
     Active Substance: SELEXIPAG
     Indication: PULMONARY ARTERIAL HYPERTENSION
     Dosage: 400 MCG, BID
     Route: 048
     Dates: start: 20180329, end: 20180522

REACTIONS (10)
  - Disease complication [Fatal]
  - Pulmonary hypertension [Fatal]
  - Delirium [Unknown]
  - Anxiety [Unknown]
  - Dyspnoea [Unknown]
  - Oxygen saturation decreased [Unknown]
  - Bedridden [Unknown]
  - Loss of consciousness [Unknown]
  - Lymphoma [Unknown]
  - Hypotension [Unknown]

NARRATIVE: CASE EVENT DATE: 20180415
